FAERS Safety Report 6091006-8 (Version None)
Quarter: 2009Q1

REPORT INFORMATION
  Report Type: 
  Country: None (occurrence: None)
  Receive Date: 20090219
  Receipt Date: 20090219
  Transmission Date: 20090719
  Serious: Yes (Other)
  Sender: FDA-Public Use
  Company Number: None

PATIENT
  Sex: Male
  Weight: 78.9259 kg

DRUGS (4)
  1. DIOVAN [Suspect]
     Indication: HYPERTENSION
     Dosage: 80 MG 1 X 1 DAY ORAL
     Route: 048
     Dates: start: 20080101
  2. HUMALOG [Concomitant]
  3. LANTUS [Concomitant]
  4. ASPIRIN [Concomitant]

REACTIONS (2)
  - DIABETES MELLITUS INADEQUATE CONTROL [None]
  - INCREASED INSULIN REQUIREMENT [None]
